FAERS Safety Report 20793307 (Version 1)
Quarter: 2022Q2

REPORT INFORMATION
  Report Type: Report from Study
  Country: US (occurrence: None)
  Receive Date: 20220506
  Receipt Date: 20220506
  Transmission Date: 20220721
  Serious: Yes (Other)
  Sender: FDA-Public Use
  Company Number: US-Merck Healthcare KGaA-9237138

PATIENT
  Age: 33 Year
  Sex: Female

DRUGS (5)
  1. REBIF [Suspect]
     Active Substance: INTERFERON BETA-1A
     Indication: Multiple sclerosis
     Dosage: DISCONTINUED DUE TO FIRST PREGNANCY
     Route: 058
  2. REBIF [Suspect]
     Active Substance: INTERFERON BETA-1A
     Dosage: PREFILLED SYRINGE
     Route: 058
     Dates: start: 20200403, end: 20210501
  3. REBIF [Suspect]
     Active Substance: INTERFERON BETA-1A
     Dates: start: 20200724, end: 20210501
  4. MODERNA COVID-19 VACCINE [Concomitant]
     Active Substance: ELASOMERAN
     Indication: COVID-19 immunisation
     Dosage: FIRST DOSE
     Dates: start: 2021
  5. MODERNA COVID-19 VACCINE [Concomitant]
     Active Substance: ELASOMERAN
     Dosage: SECOND DOSE
     Dates: start: 2021

REACTIONS (4)
  - Gestational diabetes [Unknown]
  - Visual field defect [Recovered/Resolved]
  - Maternal exposure during pregnancy [Recovered/Resolved]
  - Live birth [Recovered/Resolved]

NARRATIVE: CASE EVENT DATE: 20210101
